FAERS Safety Report 20136809 (Version 3)
Quarter: 2022Q1

REPORT INFORMATION
  Report Type: Report from Study
  Country: US (occurrence: US)
  Receive Date: 20211201
  Receipt Date: 20220119
  Transmission Date: 20220423
  Serious: No
  Sender: FDA-Public Use
  Company Number: US-NOVARTISTESTPH-NVSC2021US274713

PATIENT
  Sex: Female

DRUGS (1)
  1. COSENTYX [Suspect]
     Active Substance: SECUKINUMAB
     Indication: Psoriasis
     Dosage: 300 MG, QMO
     Route: 058
     Dates: start: 20210104

REACTIONS (6)
  - COVID-19 [Recovered/Resolved]
  - Influenza like illness [Recovered/Resolved]
  - Cough [Recovered/Resolved]
  - Illness [Recovered/Resolved]
  - Psoriasis [Recovered/Resolved]
  - Pruritus [Recovered/Resolved]
